FAERS Safety Report 11552529 (Version 1)
Quarter: 2015Q3

REPORT INFORMATION
  Report Type: Spontaneous
  Country: FR (occurrence: FR)
  Receive Date: 20150925
  Receipt Date: 20150925
  Transmission Date: 20151125
  Serious: Yes (Hospitalization)
  Sender: FDA-Public Use
  Company Number: FR-009507513-1509FRA012034

PATIENT
  Age: 84 Year
  Sex: Female

DRUGS (6)
  1. NORSET [Suspect]
     Active Substance: MIRTAZAPINE
     Dosage: 7.5 MG/DAY
     Route: 048
  2. DEPAKINE [Suspect]
     Active Substance: VALPROATE SODIUM
     Dosage: 300 MG, QD
     Dates: start: 201506
  3. MOVICOL [Suspect]
     Active Substance: POLYETHYLENE GLYCOL 3350\POTASSIUM CHLORIDE\SODIUM BICARBONATE\SODIUM CHLORIDE
     Dosage: 2 SACHETS, QD
     Route: 048
  4. LEXOMIL [Concomitant]
     Active Substance: BROMAZEPAM
     Dosage: 7.5 MG, QD
  5. X-PREP [Suspect]
     Active Substance: SENNOSIDES
     Dosage: UNK, PRN
     Route: 048
  6. CONTRAMAL [Concomitant]
     Active Substance: TRAMADOL HYDROCHLORIDE
     Dosage: 20 GTT, QD

REACTIONS (1)
  - Hypokalaemia [Unknown]

NARRATIVE: CASE EVENT DATE: 201507
